FAERS Safety Report 19972569 (Version 1)
Quarter: 2021Q4

REPORT INFORMATION
  Report Type: Report from Study
  Country: US (occurrence: US)
  Receive Date: 20211020
  Receipt Date: 20211020
  Transmission Date: 20220303
  Serious: Yes (Other)
  Sender: FDA-Public Use
  Company Number: US-BTGSP-US-BTGSP-21-0128

PATIENT
  Age: 58 Year
  Sex: Female

DRUGS (4)
  1. CROFAB [Suspect]
     Active Substance: CROTALIDAE POLYVALENT IMMUNE FAB (OVINE)
     Indication: Snake bite
     Dosage: 6 VIALS, 13 HOURS AFTER BITE
     Route: 065
  2. CROTALIDAE POLYVALENT IMMUNE FAB (OVINE) [Suspect]
     Active Substance: CROTALIDAE POLYVALENT IMMUNE FAB (OVINE)
     Indication: Snake bite
     Dosage: 10 VIALS, 2.5 HOURS AFTER BITE
     Route: 065
  3. CROTALIDAE POLYVALENT IMMUNE FAB (OVINE) [Suspect]
     Active Substance: CROTALIDAE POLYVALENT IMMUNE FAB (OVINE)
     Dosage: 10 VIALS, 7 HOURS AFTER BITE
     Route: 065
  4. ZOLPIDEM [Concomitant]
     Active Substance: ZOLPIDEM TARTRATE
     Indication: Product used for unknown indication
     Dosage: UNK, PRN

REACTIONS (6)
  - Musculoskeletal stiffness [Unknown]
  - Mobility decreased [Unknown]
  - Thrombocytopenia [Unknown]
  - Off label use [Unknown]
  - Underdose [Unknown]
  - Serum sickness [Recovered/Resolved]
